FAERS Safety Report 8249388-4 (Version None)
Quarter: 2012Q2

REPORT INFORMATION
  Report Type: 
  Country: None (occurrence: None)
  Receive Date: 20120402
  Receipt Date: 20120323
  Transmission Date: 20120825
  Serious: Yes (Hospitalization)
  Sender: FDA-Public Use
  Company Number: FR-JNJFOC-20120313145

PATIENT
  Sex: Male
  Weight: 63 kg

DRUGS (23)
  1. VINBLASTINE SULFATE [Suspect]
     Route: 042
  2. ACETAMINOPHEN AND TRAMADOL HCL [Concomitant]
     Dosage: 37.5MG/325MG
     Route: 065
  3. BACTRIM DS [Concomitant]
     Route: 065
  4. VINBLASTINE SULFATE [Suspect]
     Indication: PRODUCT USED FOR UNKNOWN INDICATION
     Route: 042
     Dates: start: 20120206, end: 20120206
  5. NORVIR [Suspect]
     Indication: PRODUCT USED FOR UNKNOWN INDICATION
     Route: 048
  6. VINBLASTINE SULFATE [Suspect]
     Route: 042
  7. VALACYCLOVIR HYDROCHLORIDE [Concomitant]
     Route: 065
  8. SPASFON [Concomitant]
     Route: 065
  9. DOXORUBICIN HCL [Concomitant]
     Route: 042
     Dates: start: 20120206
  10. CREON [Concomitant]
     Route: 065
  11. DEBRIDAT [Concomitant]
     Route: 065
  12. ZOFRAN [Concomitant]
     Route: 065
     Dates: start: 20120206
  13. DACARBAZINE [Concomitant]
     Route: 042
     Dates: start: 20120206
  14. POLARAMINE [Concomitant]
     Route: 065
  15. INTELENCE [Concomitant]
     Route: 048
  16. MOTILIUM [Concomitant]
     Route: 065
  17. PREZISTA [Suspect]
     Indication: PRODUCT USED FOR UNKNOWN INDICATION
     Route: 048
  18. ISENTRESS [Concomitant]
     Route: 065
  19. MORPHINE SULFATE [Concomitant]
     Route: 065
     Dates: start: 20120206
  20. BLEOMYCIN SULFATE [Concomitant]
     Route: 042
     Dates: start: 20120206
  21. BLEOMYCIN SULFATE [Concomitant]
     Route: 042
  22. DUSPATALIN [Concomitant]
     Route: 065
  23. EMEND [Concomitant]
     Route: 065

REACTIONS (1)
  - AGRANULOCYTOSIS [None]
